FAERS Safety Report 7720564-X (Version None)
Quarter: 2011Q3

REPORT INFORMATION
  Report Type: 
  Country: None (occurrence: None)
  Receive Date: 20110831
  Receipt Date: 20110831
  Transmission Date: 20111222
  Serious: Yes (Other)
  Sender: FDA-Public Use
  Company Number: None

PATIENT
  Age: 58 Year
  Sex: Male
  Weight: 88.45 kg

DRUGS (1)
  1. CODEINE SULFATE [Suspect]

REACTIONS (3)
  - MOOD ALTERED [None]
  - SCREAMING [None]
  - ABNORMAL BEHAVIOUR [None]
